FAERS Safety Report 4424294-1 (Version None)
Quarter: 2004Q3

REPORT INFORMATION
  Report Type: 
  Country: None (occurrence: None)
  Receive Date: 20040806
  Receipt Date: 20040806
  Transmission Date: 20050211
  Serious: Yes (Other)
  Sender: FDA-Public Use
  Company Number: None

PATIENT
  Sex: Male
  Weight: 83.9154 kg

DRUGS (2)
  1. LIPITOR [Suspect]
     Dosage: 40 MG.  DAILY
     Dates: start: 20010920, end: 20040805
  2. LIPITOR [Suspect]
     Dosage: 80 MG.  DAILY

REACTIONS (1)
  - UNEVALUABLE EVENT [None]
